FAERS Safety Report 4586560-9 (Version None)
Quarter: 2005Q1

REPORT INFORMATION
  Report Type: 
  Country: None (occurrence: None)
  Receive Date: 20050218
  Receipt Date: 20040324
  Transmission Date: 20050727
  Serious: Yes (Other)
  Sender: FDA-Public Use
  Company Number: US-BRISTOL-MYERS SQUIBB COMPANY-12542049

PATIENT
  Age: 71 Year
  Sex: Male
  Weight: 69 kg

DRUGS (8)
  1. CARBOPLATIN [Suspect]
     Indication: NON-SMALL CELL LUNG CANCER
     Dosage: 6 COMPLETE TREATMENTS UP TO 1/6/04 WITH 210 MG FIRST 500MG MONTHLY DOSE GIVEN 3/4/04
     Route: 042
     Dates: start: 20040324, end: 20040324
  2. PACLITAXEL [Suspect]
     Indication: NON-SMALL CELL LUNG CANCER
     Dosage: OVER 3 HOURS
     Route: 042
     Dates: start: 20040324, end: 20040324
  3. BENADRYL [Concomitant]
     Indication: PREMEDICATION
     Dates: start: 20040324, end: 20040324
  4. DECADRON [Concomitant]
     Indication: PREMEDICATION
     Dates: start: 20040324, end: 20040324
  5. ANZEMET [Concomitant]
     Indication: PREMEDICATION
     Dates: start: 20040324, end: 20040324
  6. TAGAMET [Concomitant]
     Indication: PREMEDICATION
     Dates: start: 20040324, end: 20040324
  7. RESTORIL [Concomitant]
     Dosage: H.S.
  8. POTASSIUM SUPPLEMENT [Concomitant]

REACTIONS (1)
  - HYPERSENSITIVITY [None]
